FAERS Safety Report 13635838 (Version 1)
Quarter: 2017Q2

REPORT INFORMATION
  Report Type: Spontaneous
  Country: US (occurrence: US)
  Receive Date: 20170531
  Receipt Date: 20170531
  Transmission Date: 20170830
  Serious: No
  Sender: FDA-Public Use
  Company Number: US-ASTELLAS-1747491

PATIENT
  Sex: Female

DRUGS (7)
  1. GILOTRIF [Concomitant]
     Active Substance: AFATINIB
  2. LOSARTAN POTASSIUM. [Concomitant]
     Active Substance: LOSARTAN POTASSIUM
  3. TARCEVA [Suspect]
     Active Substance: ERLOTINIB HYDROCHLORIDE
     Indication: LUNG NEOPLASM MALIGNANT
     Route: 048
     Dates: start: 20150731
  4. DIGOXIN. [Concomitant]
     Active Substance: DIGOXIN
  5. FOLIC ACID. [Concomitant]
     Active Substance: FOLIC ACID
  6. PROCHLORPERAZINE MALEATE. [Concomitant]
     Active Substance: PROCHLORPERAZINE MALEATE
  7. HYDROCORTISONE ACETATE. [Concomitant]
     Active Substance: HYDROCORTISONE ACETATE

REACTIONS (4)
  - Rash [Unknown]
  - Dry skin [Unknown]
  - Onychoclasis [Unknown]
  - Nail disorder [Unknown]
